FAERS Safety Report 8328653-6 (Version None)
Quarter: 2012Q2

REPORT INFORMATION
  Report Type: 
  Country: None (occurrence: None)
  Receive Date: 20120430
  Receipt Date: 20120416
  Transmission Date: 20120825
  Serious: Yes (Other)
  Sender: FDA-Public Use
  Company Number: 2012MA005230

PATIENT
  Age: 63 Year
  Sex: Male

DRUGS (3)
  1. MONOXIDINE [Concomitant]
  2. METOPROLOL TARTRATE [Concomitant]
  3. LOSARTAN POTASSIUM [Suspect]
     Indication: HYPERTENSION
     Dosage: 100 MG;QD;PO
     Route: 048
     Dates: start: 20120413

REACTIONS (2)
  - BLOOD PRESSURE INCREASED [None]
  - DRUG INEFFECTIVE [None]
